FAERS Safety Report 17242498 (Version 1)
Quarter: 2020Q1

REPORT INFORMATION
  Report Type: Spontaneous
  Country: US (occurrence: US)
  Receive Date: 20200106
  Receipt Date: 20200106
  Transmission Date: 20200409
  Serious: Yes (Disabling)
  Sender: FDA-Public Use
  Company Number: None

PATIENT
  Age: 33 Year
  Sex: Female
  Weight: 108 kg

DRUGS (3)
  1. TOPAMAX [Concomitant]
     Active Substance: TOPIRAMATE
  2. CIPROFLOXACIN. [Suspect]
     Active Substance: CIPROFLOXACIN
     Indication: URINARY TRACT INFECTION
     Dosage: ?          QUANTITY:1 TABLET(S);?
     Route: 048
     Dates: start: 20191028, end: 20191103
  3. CARBAMAZEPINE. [Concomitant]
     Active Substance: CARBAMAZEPINE

REACTIONS (23)
  - Myalgia [None]
  - Eye pain [None]
  - Ocular hyperaemia [None]
  - Abdominal pain [None]
  - Rash [None]
  - Vomiting [None]
  - Amnesia [None]
  - Burning sensation [None]
  - Paraesthesia [None]
  - Arthralgia [None]
  - Constipation [None]
  - Insomnia [None]
  - Fatigue [None]
  - Hypoaesthesia [None]
  - Tinnitus [None]
  - Ear pain [None]
  - Confusional state [None]
  - Diarrhoea [None]
  - Sexual dysfunction [None]
  - Nightmare [None]
  - Hypertension [None]
  - Weight decreased [None]
  - Depression [None]

NARRATIVE: CASE EVENT DATE: 20191103
